FAERS Safety Report 24257868 (Version 2)
Quarter: 2024Q4

REPORT INFORMATION
  Report Type: Report from Study
  Country: PK (occurrence: PK)
  Receive Date: 20240828
  Receipt Date: 20241031
  Transmission Date: 20250115
  Serious: Yes (Death)
  Sender: ROCHE
  Company Number: PK-ROCHE-3553626

PATIENT
  Age: 73 Year
  Sex: Female

DRUGS (3)
  1. POLIVY [Suspect]
     Active Substance: POLATUZUMAB VEDOTIN-PIIQ
     Indication: Diffuse large B-cell lymphoma recurrent
     Route: 042
     Dates: start: 20240424, end: 20240513
  2. POLIVY [Suspect]
     Active Substance: POLATUZUMAB VEDOTIN-PIIQ
     Indication: Diffuse large B-cell lymphoma
  3. RITUXIMAB [Suspect]
     Active Substance: RITUXIMAB
     Indication: Diffuse large B-cell lymphoma recurrent
     Route: 042
     Dates: start: 20240424, end: 20240513

REACTIONS (4)
  - Immunosuppression [Fatal]
  - Off label use [Unknown]
  - Haemoglobin decreased [Unknown]
  - Ill-defined disorder [Unknown]

NARRATIVE: CASE EVENT DATE: 20240609
